FAERS Safety Report 5431554-4 (Version None)
Quarter: 2007Q3

REPORT INFORMATION
  Report Type: 
  Country: None (occurrence: None)
  Receive Date: 20070830
  Receipt Date: 20070823
  Transmission Date: 20080115
  Serious: Yes (Life-Threatening, Hospitalization)
  Sender: FDA-Public Use
  Company Number: CA-JNJFOC-20070802546

PATIENT
  Sex: Female

DRUGS (7)
  1. RISPERDAL [Suspect]
     Indication: MAJOR DEPRESSION
     Route: 048
  2. ZOLOFT [Concomitant]
     Indication: DEPRESSION
  3. REMERON [Concomitant]
     Indication: DEPRESSION
  4. LOPRESSOR [Concomitant]
     Indication: HYPERTENSION
     Route: 048
  5. HYDROCHLOROTHIAZIDE [Concomitant]
     Indication: HYPERTENSION
     Route: 048
  6. NOVASEN [Concomitant]
     Indication: CARDIOVASCULAR DISORDER
     Route: 048
  7. RISPERDAL [Concomitant]
     Indication: PSYCHOTIC DISORDER

REACTIONS (5)
  - ILEUS [None]
  - LYMPHOPENIA [None]
  - NAUSEA [None]
  - PYREXIA [None]
  - VOMITING [None]
